FAERS Safety Report 16906090 (Version 1)
Quarter: 2019Q4

REPORT INFORMATION
  Report Type: Spontaneous
  Country: FR (occurrence: FR)
  Receive Date: 20191010
  Receipt Date: 20191010
  Transmission Date: 20200122
  Serious: Yes (Hospitalization, Other)
  Sender: FDA-Public Use
  Company Number: FR-AUROBINDO-AUR-APL-2019-064825

PATIENT
  Weight: 2 kg

DRUGS (10)
  1. TRACTOCILE [Concomitant]
     Active Substance: ATOSIBAN
     Indication: TOCOLYSIS
     Dosage: UNK
     Route: 064
     Dates: start: 20150930, end: 20151001
  2. QUETIAPINE. [Suspect]
     Active Substance: QUETIAPINE
     Indication: PRODUCT USED FOR UNKNOWN INDICATION
     Dosage: UNK
     Route: 064
     Dates: start: 20150222, end: 20151001
  3. LAMICTAL [Suspect]
     Active Substance: LAMOTRIGINE
     Indication: PRODUCT USED FOR UNKNOWN INDICATION
     Dosage: UNK
     Route: 064
     Dates: start: 20150222, end: 20151001
  4. CLAMOXYL [Concomitant]
     Indication: PRODUCT USED FOR UNKNOWN INDICATION
     Dosage: UNK
     Route: 064
     Dates: start: 20150930, end: 20151001
  5. ZOLOFT [Suspect]
     Active Substance: SERTRALINE HYDROCHLORIDE
     Indication: PRODUCT USED FOR UNKNOWN INDICATION
     Dosage: UNK
     Route: 064
     Dates: start: 20150222, end: 20151001
  6. TERCIAN [Suspect]
     Active Substance: CYAMEMAZINE
     Indication: PRODUCT USED FOR UNKNOWN INDICATION
     Dosage: UNK
     Route: 064
     Dates: start: 20150222, end: 20151001
  7. KEPPRA [Suspect]
     Active Substance: LEVETIRACETAM
     Indication: IDIOPATHIC GENERALISED EPILEPSY
     Dosage: UNK
     Route: 064
     Dates: start: 20150222, end: 20151001
  8. STILNOX [Suspect]
     Active Substance: ZOLPIDEM TARTRATE
     Indication: PRODUCT USED FOR UNKNOWN INDICATION
     Dosage: UNK
     Route: 064
     Dates: start: 20150222, end: 20151001
  9. SPECIAFOLDINE [Concomitant]
     Active Substance: FOLIC ACID
     Indication: PRODUCT USED FOR UNKNOWN INDICATION
     Dosage: UNK
     Route: 064
     Dates: end: 20151001
  10. SYNTOCINON [Concomitant]
     Active Substance: OXYTOCIN
     Indication: UTERINE CERVIX DILATION PROCEDURE
     Dosage: UNK
     Route: 065
     Dates: start: 20151001, end: 20151001

REACTIONS (9)
  - Premature baby [Recovered/Resolved]
  - Foetal heart rate deceleration abnormality [Recovered/Resolved]
  - Hypoglycaemia [Unknown]
  - Hypotonia [Unknown]
  - Respiratory distress [Recovered/Resolved]
  - Low birth weight baby [Unknown]
  - Neonatal behavioural syndrome [Unknown]
  - Jaundice [Unknown]
  - Maternal exposure during pregnancy [Unknown]

NARRATIVE: CASE EVENT DATE: 20150222
